FAERS Safety Report 6300796-8 (Version None)
Quarter: 2009Q3

REPORT INFORMATION
  Report Type: 
  Country: None (occurrence: None)
  Receive Date: 20090807
  Receipt Date: 20090731
  Transmission Date: 20100115
  Serious: Yes (Life-Threatening)
  Sender: FDA-Public Use
  Company Number: HK-BRISTOL-MYERS SQUIBB COMPANY-14722516

PATIENT
  Age: 61 Year
  Sex: Male
  Weight: 51 kg

DRUGS (3)
  1. CETUXIMAB [Suspect]
     Indication: GASTROOESOPHAGEAL CANCER
     Dosage: RECENT INF: 16JUL09
     Route: 042
     Dates: start: 20090409
  2. CISPLATIN [Suspect]
     Indication: GASTROOESOPHAGEAL CANCER
     Dosage: MOST RECENT INF:02JUL09; INTERRUPTED ON 23JUL09; DAY 1 OF CYCLE
     Route: 042
     Dates: start: 20090409
  3. XELODA [Suspect]
     Indication: GASTROOESOPHAGEAL CANCER
     Dosage: RECENT INF: 23JUN09;INTERRUPTED ON 02JUL09;ON DAY 1-15
     Route: 048
     Dates: start: 20090409

REACTIONS (4)
  - HYPOKALAEMIA [None]
  - HYPOMAGNESAEMIA [None]
  - NEUTROPENIA [None]
  - PALMAR-PLANTAR ERYTHRODYSAESTHESIA SYNDROME [None]
